FAERS Safety Report 20034147 (Version 1)
Quarter: 2021Q4

REPORT INFORMATION
  Report Type: Spontaneous
  Country: CA (occurrence: CA)
  Receive Date: 20211104
  Receipt Date: 20211104
  Transmission Date: 20220304
  Serious: Yes (Other)
  Sender: FDA-Public Use
  Company Number: CA-PFIZER INC-2021650599

PATIENT
  Age: 89 Year
  Sex: Female

DRUGS (2)
  1. XELJANZ [Suspect]
     Active Substance: TOFACITINIB CITRATE
     Indication: Rheumatoid arthritis
     Dosage: 5 MG, 2X/DAY (HOLDING XELJANZ FOR AT LEAST 20 DAYS)AS OF 28MAY2021))
     Route: 048
     Dates: start: 20170914, end: 20210515
  2. PREDNISONE [Concomitant]
     Active Substance: PREDNISONE
     Dosage: 50 MG,UNKNOWN FREQUENCY AND DRUG STATUS

REACTIONS (4)
  - Joint effusion [Unknown]
  - Acne [Unknown]
  - Pustule [Unknown]
  - Dermatitis [Recovering/Resolving]

NARRATIVE: CASE EVENT DATE: 20210101
